FAERS Safety Report 6535288-4 (Version None)
Quarter: 2010Q1

REPORT INFORMATION
  Report Type: 
  Country: None (occurrence: None)
  Receive Date: 20100113
  Receipt Date: 20091228
  Transmission Date: 20100710
  Serious: No
  Sender: FDA-Public Use
  Company Number: JP-ROCHE-678345

PATIENT
  Age: 5 Year

DRUGS (1)
  1. TAMIFLU [Suspect]
     Indication: DRUG USE FOR UNKNOWN INDICATION
     Route: 048

REACTIONS (1)
  - ACCIDENTAL OVERDOSE [None]
